FAERS Safety Report 4430838-6 (Version None)
Quarter: 2004Q3

REPORT INFORMATION
  Report Type: 
  Country: None (occurrence: None)
  Receive Date: 20040823
  Receipt Date: 20040819
  Transmission Date: 20050211
  Serious: Yes (Death)
  Sender: FDA-Public Use
  Company Number: LB-MERCK-0408USA01506

PATIENT
  Age: 25 Year
  Sex: Female

DRUGS (5)
  1. AMPHOTERICIN B [Concomitant]
     Route: 065
  2. ANTINEOPLASTIC (UNSPECIFIED) [Concomitant]
     Route: 065
  3. CANCIDAS [Suspect]
     Indication: ACUTE LYMPHOCYTIC LEUKAEMIA
     Route: 042
     Dates: start: 20040701, end: 20040816
  4. DIFLUCAN [Concomitant]
     Route: 065
  5. SPORANOX [Concomitant]
     Route: 065

REACTIONS (2)
  - PULMONARY HAEMORRHAGE [None]
  - SEPTIC SHOCK [None]
